FAERS Safety Report 7909922-8 (Version None)
Quarter: 2011Q4

REPORT INFORMATION
  Report Type: 
  Country: None (occurrence: None)
  Receive Date: 20111111
  Receipt Date: 20111101
  Transmission Date: 20120403
  Serious: Yes (Disabling, Other)
  Sender: FDA-Public Use
  Company Number: GB-ROCHE-1008781

PATIENT
  Age: 63 Year
  Sex: Female
  Weight: 92 kg

DRUGS (2)
  1. ACTEMRA [Suspect]
     Dates: start: 20110805
  2. ACTEMRA [Suspect]
     Indication: RHEUMATOID ARTHRITIS
     Dates: start: 20110707

REACTIONS (4)
  - MOUTH ULCERATION [None]
  - PRURITUS [None]
  - ULCER [None]
  - RASH GENERALISED [None]
